FAERS Safety Report 7918201-4 (Version None)
Quarter: 2011Q4

REPORT INFORMATION
  Report Type: 
  Country: None (occurrence: None)
  Receive Date: 20111116
  Receipt Date: 20111104
  Transmission Date: 20120403
  Serious: Yes (Hospitalization)
  Sender: FDA-Public Use
  Company Number: US-GLAXOSMITHKLINE-A0870712A

PATIENT
  Age: 66 Year
  Sex: Female

DRUGS (5)
  1. METFORMIN HCL [Concomitant]
  2. WELLBUTRIN XL [Concomitant]
  3. BEXTRA [Concomitant]
  4. AVANDIA [Suspect]
     Indication: TYPE 2 DIABETES MELLITUS
     Dosage: 4MG TWICE PER DAY
     Route: 048
     Dates: start: 20040101
  5. ZOCOR [Concomitant]

REACTIONS (3)
  - MYOCARDIAL INFARCTION [None]
  - ARTHROPATHY [None]
  - POOR PERIPHERAL CIRCULATION [None]
